FAERS Safety Report 9169838 (Version 3)
Quarter: 2014Q2

REPORT INFORMATION
  Report Type: Spontaneous
  Country: BR (occurrence: BR)
  Receive Date: 20130319
  Receipt Date: 20140508
  Transmission Date: 20141212
  Serious: Yes (Other)
  Sender: FDA-Public Use
  Company Number: BR-AMGEN-BRASP2013018291

PATIENT
  Age: 75 Year
  Sex: Female
  Weight: 65 kg

DRUGS (6)
  1. ENBREL [Suspect]
     Indication: RHEUMATOID ARTHRITIS
     Dosage: UNK
     Route: 065
     Dates: start: 2009
  2. ENBREL [Suspect]
     Dosage: 50 MG, QWK
     Route: 058
     Dates: start: 20121212
  3. CLORANA [Concomitant]
     Indication: HYPERTENSION
     Dosage: UNK
  4. GABAPENTIN [Concomitant]
     Dosage: UNK
  5. ARAVA [Concomitant]
     Dosage: UNK
     Dates: start: 20121212
  6. ULTRACET [Concomitant]
     Dosage: UNK

REACTIONS (5)
  - Retinal detachment [Unknown]
  - Visual impairment [Unknown]
  - Labyrinthitis [Unknown]
  - Spinal pain [Unknown]
  - Varicose ulceration [Unknown]
